FAERS Safety Report 22262808 (Version 2)
Quarter: 2023Q2

REPORT INFORMATION
  Report Type: Spontaneous
  Country: DE (occurrence: DE)
  Receive Date: 20230428
  Receipt Date: 20230519
  Transmission Date: 20230722
  Serious: Yes (Death)
  Sender: FDA-Public Use
  Company Number: DE-BAYER-2023A058316

PATIENT
  Sex: Female

DRUGS (2)
  1. VERICIGUAT HYDROCHLORIDE [Suspect]
     Active Substance: VERICIGUAT HYDROCHLORIDE
     Indication: Cardiac failure
     Dosage: 5 MILLIGRAM
     Route: 048
  2. VERICIGUAT HYDROCHLORIDE [Suspect]
     Active Substance: VERICIGUAT HYDROCHLORIDE
     Indication: Ischaemic cardiomyopathy
     Dosage: 5 MG
     Dates: start: 20230406, end: 20230414

REACTIONS (1)
  - Cardiac arrest [Fatal]

NARRATIVE: CASE EVENT DATE: 20230415
